FAERS Safety Report 8949891 (Version 5)
Quarter: 2013Q4

REPORT INFORMATION
  Report Type: Report from Study
  Country: US (occurrence: US)
  Receive Date: 20121206
  Receipt Date: 20131216
  Transmission Date: 20140711
  Serious: Yes (Hospitalization)
  Sender: FDA-Public Use
  Company Number: US-PFIZER INC-2012288685

PATIENT
  Age: 74 Year
  Sex: Female
  Weight: 50.34 kg

DRUGS (10)
  1. DACOMITINIB [Suspect]
     Indication: NON-SMALL CELL LUNG CANCER
     Dosage: 45 MG, 1X/DAY (LEVEL 0)
     Route: 048
     Dates: start: 20121017, end: 20121111
  2. PLACEBO [Suspect]
     Indication: NON-SMALL CELL LUNG CANCER
     Dosage: 1X/DAY
     Route: 048
     Dates: start: 20121017, end: 20121111
  3. DOXYCYCLINE HYCLATE [Suspect]
     Indication: RASH
     Dosage: 100 MG, 2X/DAY
     Route: 048
     Dates: start: 20121105, end: 20121107
  4. BACTRIM DS [Suspect]
     Indication: URINARY TRACT INFECTION
     Dosage: 800/160MG. BID
     Route: 048
     Dates: start: 20121024, end: 20121028
  5. COREG [Concomitant]
     Indication: ATRIAL FIBRILLATION
     Dosage: 6.5 MG, 2X/DAY
     Route: 048
     Dates: start: 201204
  6. ZOFRAN [Concomitant]
     Indication: NAUSEA
     Dosage: 4 MG, EVERY 6 HOURS
     Route: 048
     Dates: start: 20121024
  7. PROMETHAZINE [Concomitant]
     Indication: NAUSEA
     Dosage: 25 MG, EVERY 6 HOURS
     Route: 048
     Dates: start: 20121031
  8. LOMOTIL [Concomitant]
     Indication: DIARRHOEA
     Dosage: 0.25-2.5 MG, BID
     Dates: start: 20121105
  9. WARFARIN [Concomitant]
     Indication: HEART VALVE REPLACEMENT
     Dosage: 7.5 MG, TUESDAY, THURSDAY, SATURDAY
     Route: 048
     Dates: start: 2003
  10. WARFARIN [Concomitant]
     Dosage: 5 MG, WEDNESDAY, FRIDAY, SUNDAY
     Route: 048
     Dates: start: 2003

REACTIONS (1)
  - International normalised ratio increased [Recovered/Resolved]
